FAERS Safety Report 4305194-4 (Version None)
Quarter: 2004Q1

REPORT INFORMATION
  Report Type: 
  Country: None (occurrence: None)
  Receive Date: 20040226
  Receipt Date: 20040213
  Transmission Date: 20041129
  Serious: Yes (Hospitalization)
  Sender: FDA-Public Use
  Company Number: FR-GLAXOSMITHKLINE-B0323396A

PATIENT
  Age: 79 Year
  Sex: Female
  Weight: 65 kg

DRUGS (8)
  1. VALACYCLOVIR HCL [Suspect]
     Indication: HERPES ZOSTER
     Dosage: 14UNIT FOUR TIMES PER DAY
     Route: 048
     Dates: start: 20031121, end: 20031128
  2. RIVOTRIL [Suspect]
     Route: 048
     Dates: start: 20031129, end: 20031204
  3. URBANYL [Suspect]
     Route: 048
  4. ELISOR [Suspect]
     Route: 048
  5. BIPRETERAX [Suspect]
     Dosage: 1UNIT PER DAY
     Route: 048
  6. DAFALGAN [Concomitant]
  7. TRAMADOL [Concomitant]
     Route: 048
  8. MAGNE B6 [Concomitant]
     Route: 048

REACTIONS (14)
  - ABDOMINAL TENDERNESS [None]
  - ANOREXIA [None]
  - ASTHENIA [None]
  - BLOOD GLUCOSE INCREASED [None]
  - CEREBELLAR SYNDROME [None]
  - COMA [None]
  - CONFUSIONAL STATE [None]
  - FLATULENCE [None]
  - GENERAL PHYSICAL HEALTH DETERIORATION [None]
  - INSOMNIA [None]
  - PROTEIN TOTAL INCREASED [None]
  - SPEECH DISORDER [None]
  - VENTRICULAR EXTRASYSTOLES [None]
  - WEIGHT DECREASED [None]
